FAERS Safety Report 15384813 (Version 1)
Quarter: 2018Q3

REPORT INFORMATION
  Report Type: Spontaneous
  Country: FR (occurrence: FR)
  Receive Date: 20180914
  Receipt Date: 20180914
  Transmission Date: 20181010
  Serious: Yes (Hospitalization)
  Sender: FDA-Public Use
  Company Number: FR-SA-2018SA246227

PATIENT
  Age: 82 Year
  Sex: Female
  Weight: 55 kg

DRUGS (2)
  1. NEBIVOLOL HYDROCHLORIDE [Suspect]
     Active Substance: NEBIVOLOL HYDROCHLORIDE
     Dosage: 5 MG, QD
     Route: 048
  2. APROVEL [Suspect]
     Active Substance: IRBESARTAN
     Dosage: 75 MG, QD
     Route: 048

REACTIONS (2)
  - Hypotension [Not Recovered/Not Resolved]
  - Bradycardia [Not Recovered/Not Resolved]

NARRATIVE: CASE EVENT DATE: 20180612
